FAERS Safety Report 6534042-7 (Version None)
Quarter: 2010Q1

REPORT INFORMATION
  Report Type: 
  Country: None (occurrence: None)
  Receive Date: 20100112
  Receipt Date: 20100107
  Transmission Date: 20100710
  Serious: Yes (Hospitalization)
  Sender: FDA-Public Use
  Company Number: FR-WYE-G05285010

PATIENT
  Sex: Female

DRUGS (4)
  1. EFFEXOR [Suspect]
     Indication: BIPOLAR I DISORDER
     Dosage: UNKNOWN
     Route: 048
  2. RIVOTRIL [Concomitant]
     Indication: BIPOLAR I DISORDER
     Dosage: UNKNOWN
     Route: 048
  3. LITHIUM CARBONATE [Concomitant]
     Indication: BIPOLAR I DISORDER
     Dosage: UNKNOWN
     Route: 048
  4. ABILIFY [Suspect]
     Indication: BIPOLAR I DISORDER
     Dosage: UNKNOWN
     Route: 048

REACTIONS (3)
  - CEREBRAL ARTERY OCCLUSION [None]
  - CEREBRAL INFARCTION [None]
  - PYREXIA [None]
